FAERS Safety Report 13457007 (Version 2)
Quarter: 2017Q3

REPORT INFORMATION
  Report Type: Spontaneous
  Country: US (occurrence: US)
  Receive Date: 20170419
  Receipt Date: 20170721
  Transmission Date: 20171127
  Serious: No
  Sender: FDA-Public Use
  Company Number: US-ST. RENATUS-2017STR00010

PATIENT
  Age: 44 Year
  Sex: Female
  Weight: 85.71 kg

DRUGS (2)
  1. UNSPECIFIED ANXIETY MEDICATION [Concomitant]
  2. KOVANAZE [Suspect]
     Active Substance: OXYMETAZOLINE HYDROCHLORIDE\TETRACAINE HYDROCHLORIDE
     Indication: TOOTH REPAIR
     Dosage: 2 DOSAGE UNITS, ONCE
     Route: 045
     Dates: start: 20170309

REACTIONS (7)
  - Erythema [Recovered/Resolved]
  - Nasal congestion [Recovered/Resolved]
  - Rhinorrhoea [Recovered/Resolved]
  - Tenderness [Recovered/Resolved]
  - Oropharyngeal pain [Recovered/Resolved]
  - Dysphonia [Recovered/Resolved]
  - Nasal discomfort [Recovered/Resolved]

NARRATIVE: CASE EVENT DATE: 20170309
